FAERS Safety Report 9796380 (Version 2)
Quarter: 2014Q1

REPORT INFORMATION
  Report Type: Spontaneous
  Country: AR (occurrence: AR)
  Receive Date: 20140103
  Receipt Date: 20140303
  Transmission Date: 20141002
  Serious: Yes (Hospitalization, Other)
  Sender: FDA-Public Use
  Company Number: AR-PFIZER INC-2014000601

PATIENT
  Age: 43 Year
  Sex: Male

DRUGS (7)
  1. RAPAMUNE [Suspect]
     Indication: RENAL TRANSPLANT
     Dosage: 3 MG, DAILY
     Dates: start: 20070817
  2. MORPHINE SULFATE [Suspect]
     Indication: ABDOMINAL PAIN
  3. TACROLIMUS [Concomitant]
     Indication: RENAL TRANSPLANT
     Dosage: UNK
  4. DELTISONA B [Concomitant]
     Indication: RENAL TRANSPLANT
     Dosage: UNK
  5. OMEPRAZOL [Concomitant]
     Dosage: UNK
  6. ENALAPRIL [Concomitant]
     Dosage: UNK
  7. ATENOLOL [Concomitant]
     Dosage: UNK

REACTIONS (5)
  - Dehydration [Recovered/Resolved]
  - Renal disorder [Recovered/Resolved]
  - Bile duct obstruction [Recovered/Resolved]
  - Cholecystitis infective [Recovered/Resolved]
  - Abdominal pain [Recovered/Resolved]
